FAERS Safety Report 21254549 (Version 3)
Quarter: 2025Q2

REPORT INFORMATION
  Report Type: Report from Study
  Country: DE (occurrence: DE)
  Receive Date: 20220825
  Receipt Date: 20250414
  Transmission Date: 20250716
  Serious: Yes (Death, Hospitalization)
  Sender: ABBVIE
  Company Number: DE-ABBVIE-22K-062-4514932-00

PATIENT
  Age: 82 Year
  Sex: Female

DRUGS (5)
  1. RINVOQ [Suspect]
     Active Substance: UPADACITINIB
     Indication: Rheumatoid arthritis
     Route: 048
     Dates: start: 202110, end: 202207
  2. METHOTREXATE SODIUM [Concomitant]
     Active Substance: METHOTREXATE SODIUM
     Indication: Product used for unknown indication
     Dosage: START DATE TEXT: BETWEEN 5AUG2020 AND 01JUL2021?DURATION TEXT: BETWEEN 5AUG2020 AND 01JUL2021
     Dates: end: 202207
  3. METHOTREXATE SODIUM [Concomitant]
     Active Substance: METHOTREXATE SODIUM
     Indication: Product used for unknown indication
  4. METHOTREXATE SODIUM [Concomitant]
     Active Substance: METHOTREXATE SODIUM
     Indication: Product used for unknown indication
  5. ETANERCEPT [Concomitant]
     Active Substance: ETANERCEPT
     Indication: Product used for unknown indication
     Dates: start: 202207

REACTIONS (4)
  - Death [Fatal]
  - Rotator cuff syndrome [Recovered/Resolved]
  - Haemarthrosis [Recovered/Resolved]
  - Seroma [Recovered/Resolved]

NARRATIVE: CASE EVENT DATE: 20220705
